FAERS Safety Report 4700172-5 (Version None)
Quarter: 2005Q2

REPORT INFORMATION
  Report Type: 
  Country: None (occurrence: None)
  Receive Date: 20050624
  Receipt Date: 20050624
  Transmission Date: 20051028
  Serious: Yes (Hospitalization, Other)
  Sender: FDA-Public Use
  Company Number: None

PATIENT
  Sex: Female
  Weight: 7536 kg

DRUGS (5)
  1. CISPLATIN [Suspect]
     Dates: start: 20050418
  2. IRINOTECAN [Suspect]
  3. CARBOPLATIN [Suspect]
  4. ETOPOSIDE [Suspect]
  5. RADIOTHERAPY [Suspect]

REACTIONS (9)
  - ANAEMIA [None]
  - CHEST PAIN [None]
  - DYSPNOEA [None]
  - HYPERTENSION [None]
  - NEUTROPENIA [None]
  - TACHYCARDIA [None]
  - THROMBOCYTOPENIA [None]
  - TRANSFUSION REACTION [None]
  - TROPONIN INCREASED [None]
